FAERS Safety Report 5145042-6 (Version None)
Quarter: 2006Q4

REPORT INFORMATION
  Report Type: 
  Country: None (occurrence: None)
  Receive Date: 20061107
  Receipt Date: 20061023
  Transmission Date: 20070319
  Serious: Yes (Hospitalization)
  Sender: FDA-Public Use
  Company Number: RO-GLAXOSMITHKLINE-B0444217A

PATIENT
  Age: 19 Year
  Sex: Female
  Weight: 61 kg

DRUGS (3)
  1. ZIAGEN [Suspect]
     Indication: HIV INFECTION
     Dosage: 300MG TWICE PER DAY
     Route: 048
     Dates: start: 20061006
  2. VIRAMUNE [Suspect]
     Indication: HIV INFECTION
     Route: 048
     Dates: start: 20061006, end: 20061023
  3. COMBIVIR [Concomitant]
     Dates: start: 20061006

REACTIONS (5)
  - LYMPHADENOPATHY [None]
  - ODYNOPHAGIA [None]
  - PYREXIA [None]
  - RASH MACULAR [None]
  - TONSILLAR HYPERTROPHY [None]
